FAERS Safety Report 12328004 (Version 1)
Quarter: 2016Q2

REPORT INFORMATION
  Report Type: Spontaneous
  Country: FR (occurrence: FR)
  Receive Date: 20160503
  Receipt Date: 20160503
  Transmission Date: 20160815
  Serious: Yes (Life-Threatening, Hospitalization)
  Sender: FDA-Public Use
  Company Number: FR-ELI_LILLY_AND_COMPANY-FR201602001481

PATIENT
  Age: 45 Year
  Sex: Male

DRUGS (5)
  1. EFIENT [Suspect]
     Active Substance: PRASUGREL HYDROCHLORIDE
     Indication: ACUTE CORONARY SYNDROME
     Dosage: 10 MG, QD
     Route: 048
     Dates: start: 20151210, end: 20160117
  2. ATORVASTATINE                      /01326101/ [Concomitant]
     Active Substance: ATORVASTATIN
     Indication: ACUTE CORONARY SYNDROME
     Dosage: 80 MG, UNKNOWN
  3. ISOPTINE [Concomitant]
     Active Substance: VERAPAMIL HYDROCHLORIDE
  4. KARDEGIC [Suspect]
     Active Substance: ASPIRIN LYSINE
     Indication: ACUTE CORONARY SYNDROME
     Dosage: 75 MG, QD
     Route: 048
     Dates: start: 20151210, end: 20160117
  5. RAMIPRIL. [Concomitant]
     Active Substance: RAMIPRIL
     Indication: ACUTE CORONARY SYNDROME
     Dosage: 1.25 MG, UNKNOWN

REACTIONS (2)
  - Coma [Recovered/Resolved]
  - Subdural haematoma [Recovered/Resolved]

NARRATIVE: CASE EVENT DATE: 20160117
